FAERS Safety Report 15851961 (Version 1)
Quarter: 2019Q1

REPORT INFORMATION
  Report Type: Spontaneous
  Country: US (occurrence: US)
  Receive Date: 20190122
  Receipt Date: 20190122
  Transmission Date: 20190417
  Serious: Yes (Other)
  Sender: FDA-Public Use
  Company Number: US-PROCTER_AND_GAMBLE-GS19003363

PATIENT
  Age: 36 Year
  Sex: Female

DRUGS (1)
  1. HEAD AND SHOULDERS SMOOTH AND SILKY [Suspect]
     Active Substance: PYRITHIONE ZINC
     Dosage: QUARTER SIZE EVERY DAY
     Route: 061
     Dates: end: 20190110

REACTIONS (4)
  - Pruritus [Not Recovered/Not Resolved]
  - Urticaria [Not Recovered/Not Resolved]
  - Rash erythematous [Not Recovered/Not Resolved]
  - Pruritus [None]

NARRATIVE: CASE EVENT DATE: 20190102
